FAERS Safety Report 7907039-X (Version None)
Quarter: 2011Q4

REPORT INFORMATION
  Report Type: 
  Country: None (occurrence: None)
  Receive Date: 20111110
  Receipt Date: 20111104
  Transmission Date: 20120403
  Serious: Yes (Hospitalization, Other)
  Sender: FDA-Public Use
  Company Number: US-ABBOTT-11P-163-0871837-00

PATIENT
  Sex: Female
  Weight: 47.67 kg

DRUGS (9)
  1. PENTASA [Concomitant]
     Indication: CROHN'S DISEASE
  2. PREVACID [Concomitant]
     Indication: GASTROOESOPHAGEAL REFLUX DISEASE
  3. IMURAN [Concomitant]
     Indication: CROHN'S DISEASE
  4. FOLIC ACID [Concomitant]
     Indication: VITAMIN SUPPLEMENTATION
  5. GLUCOSAMINE [Concomitant]
     Indication: PRODUCT USED FOR UNKNOWN INDICATION
  6. VITAMIN TAB [Concomitant]
     Indication: VITAMIN SUPPLEMENTATION
  7. VITAMIN B-12 [Concomitant]
     Indication: VITAMIN SUPPLEMENTATION
  8. HUMIRA [Suspect]
     Indication: CROHN'S DISEASE
     Route: 058
     Dates: start: 20080101, end: 20110824
  9. RECLAST [Concomitant]
     Indication: OSTEOPOROSIS

REACTIONS (7)
  - STAPHYLOCOCCAL INFECTION [None]
  - BURSITIS [None]
  - IMPAIRED HEALING [None]
  - WOUND SECRETION [None]
  - PURULENT DISCHARGE [None]
  - HYPERTENSION [None]
  - ARTHRITIS INFECTIVE [None]
